FAERS Safety Report 7372562-6 (Version None)
Quarter: 2011Q1

REPORT INFORMATION
  Report Type: 
  Country: None (occurrence: None)
  Receive Date: 20110324
  Receipt Date: 20110321
  Transmission Date: 20110831
  Serious: Yes (Hospitalization)
  Sender: FDA-Public Use
  Company Number: IT-BRISTOL-MYERS SQUIBB COMPANY-15055429

PATIENT
  Age: 77 Year
  Sex: Female

DRUGS (10)
  1. MABTHERA [Suspect]
     Indication: NON-HODGKIN'S LYMPHOMA
     Dosage: 03MAR2010 MABTHERA 100MG/10ML VIAL
     Route: 042
     Dates: start: 20091223, end: 20100303
  2. ZEFFIX [Concomitant]
     Dosage: ZEFFIX 100MG FILM COATED ORAL
     Route: 048
  3. HOLOXAN PWDR INJ [Suspect]
     Indication: NON-HODGKIN'S LYMPHOMA
     Dosage: INTERRUPTED ON 04MAR2010
     Route: 042
     Dates: start: 20091216
  4. GRANULOKINE [Concomitant]
     Dosage: 1 DF = GRANULOKINE 0,5 ML 30 MU
  5. UROMITEXAN INJ [Concomitant]
     Dosage: UROMITEXAN 400MG/4ML INJECTABLE SOLUTION
     Route: 042
  6. ELOPRAM [Concomitant]
     Dosage: 1 DF = ELOPRAM 40MG/ML ORAL DROPS (6 POSOLOGIC UNIT).
     Route: 048
  7. VEPESID CAPS 100 MG [Suspect]
     Indication: NON-HODGKIN'S LYMPHOMA
     Dosage: INTERRUPTED ON 04MAR2010
     Route: 048
     Dates: start: 20091216
  8. ACYCLOVIR [Concomitant]
  9. BACTRIM [Concomitant]
     Dosage: BACTRIM 160MG+800MG SOLUBLE TABS
     Route: 048
  10. MITOXANTRONE [Suspect]
     Indication: NON-HODGKIN'S LYMPHOMA
     Dosage: MITOXANTRONE EBEWE 2MG/ML CONCENTRATE FOR SOLUTION FOR INFUSION,MITOXANTRONE SANDOZ
     Route: 042
     Dates: start: 20091216, end: 20100304

REACTIONS (1)
  - PLEURAL EFFUSION [None]
